FAERS Safety Report 4540919-4 (Version None)
Quarter: 2004Q4

REPORT INFORMATION
  Report Type: 
  Country: None (occurrence: None)
  Receive Date: 20041229
  Receipt Date: 20041109
  Transmission Date: 20050328
  Serious: Yes (Life-Threatening, Hospitalization)
  Sender: FDA-Public Use
  Company Number: 384706

PATIENT
  Age: 68 Year
  Sex: Female

DRUGS (1)
  1. CARVEDILOL [Suspect]
     Indication: HYPERTENSION
     Dosage: 10MG TWICE PER DAY
     Route: 048
     Dates: end: 20040927

REACTIONS (4)
  - LETHARGY [None]
  - SICK SINUS SYNDROME [None]
  - SINUS ARREST [None]
  - SINUS BRADYCARDIA [None]
